FAERS Safety Report 19431961 (Version 1)
Quarter: 2021Q2

REPORT INFORMATION
  Report Type: Spontaneous
  Country: SE (occurrence: SE)
  Receive Date: 20210617
  Receipt Date: 20210617
  Transmission Date: 20210717
  Serious: Yes (Other)
  Sender: FDA-Public Use
  Company Number: SE-PFIZER INC-2021653732

PATIENT
  Age: 29 Year
  Sex: Male

DRUGS (2)
  1. RITUXIMAB. [Suspect]
     Active Substance: RITUXIMAB
     Dosage: UNK
     Route: 041
  2. OCREVUS [Suspect]
     Active Substance: OCRELIZUMAB
     Dosage: UNK
     Route: 065

REACTIONS (6)
  - Erysipelas [Unknown]
  - Antibody test negative [Unknown]
  - Malaise [Unknown]
  - Muscular weakness [Unknown]
  - Dizziness [Unknown]
  - Paresis [Unknown]
